FAERS Safety Report 9522044 (Version 1)
Quarter: 2013Q3

REPORT INFORMATION
  Report Type: Spontaneous
  Country: US (occurrence: None)
  Receive Date: 20130821
  Receipt Date: 20130821
  Transmission Date: 20140515
  Serious: Yes (Other)
  Sender: FDA-Public Use
  Company Number: 2013037490

PATIENT
  Age: 67 Year
  Sex: Female
  Weight: 60.33 kg

DRUGS (15)
  1. HIZENTRA (IMMUNOGLOBULIN HUMAN NORMAL) [Suspect]
     Indication: IMMUNODEFICIENCY COMMON VARIABLE
     Route: 058
     Dates: start: 20130809, end: 20130809
  2. ACETAMINOPHEN (PARACETAMOL) [Concomitant]
  3. DIPHENHYDRAMINE (DIPHENHYDRAMINE) [Concomitant]
  4. EPI-PEN [Concomitant]
  5. LMX (LIDOCAINE) [Concomitant]
  6. SINGULAIR [Concomitant]
  7. SYNTHROID (LEVOTHYROXINE SODIUM) [Concomitant]
  8. FERROUS SULFATE (FERROUS SULFATE) [Concomitant]
  9. KLOR CON (POTASSIUM CHLORIDE) [Concomitant]
  10. ESTRADIOL (ESTRADIOL) [Concomitant]
  11. VERAPAMIL (VERAPAMIL) [Concomitant]
  12. BIOTIN (BIOTIN) [Concomitant]
  13. VITAMIN D (ERGOCALCIFEROL) [Concomitant]
  14. DAILY MULTIVITAMINS (DAILY MULTIVITAMINS) [Concomitant]
  15. TENEX (GUANFACINE HYDROCHLORIDE) [Concomitant]

REACTIONS (10)
  - Oedema [None]
  - Headache [None]
  - Nausea [None]
  - Vomiting [None]
  - Injection site pain [None]
  - Injection site erythema [None]
  - Back pain [None]
  - Infusion site swelling [None]
  - Musculoskeletal stiffness [None]
  - Infusion site mass [None]
